FAERS Safety Report 9427054 (Version 1)
Quarter: 2013Q3

REPORT INFORMATION
  Report Type: Report from Study
  Country: US (occurrence: US)
  Receive Date: 20130730
  Receipt Date: 20130730
  Transmission Date: 20140515
  Serious: No
  Sender: FDA-Public Use
  Company Number: US-ABBOTT-12P-163-0965953-00

PATIENT
  Sex: Female

DRUGS (3)
  1. NIASPAN (COATED) 1000MG [Suspect]
     Indication: PRODUCT USED FOR UNKNOWN INDICATION
     Dosage: DOSE INCREASED
  2. NIASPAN (COATED) 1000MG [Suspect]
     Dosage: AT BEDTIME, DOSE DECREASED BACK TO 500MG
     Route: 048
  3. NIASPAN (COATED) 1000MG [Suspect]

REACTIONS (2)
  - Blood pressure increased [Recovered/Resolved]
  - Flushing [Recovered/Resolved]
